FAERS Safety Report 24908525 (Version 1)
Quarter: 2025Q1

REPORT INFORMATION
  Report Type: Spontaneous
  Country: US (occurrence: US)
  Receive Date: 20250131
  Receipt Date: 20250131
  Transmission Date: 20250409
  Serious: No
  Sender: AMGEN
  Company Number: US-AMGEN-USASP2025018017

PATIENT
  Age: 69 Year
  Sex: Female

DRUGS (4)
  1. REPATHA [Suspect]
     Active Substance: EVOLOCUMAB
     Indication: Blood cholesterol increased
     Dosage: 140 MILLIGRAM, Q2WK, (STRENGTH:140 MG)
     Route: 058
  2. REPATHA [Suspect]
     Active Substance: EVOLOCUMAB
     Route: 058
  3. ZEPBOUND [Concomitant]
     Active Substance: TIRZEPATIDE
  4. OZEMPIC [Concomitant]
     Active Substance: SEMAGLUTIDE

REACTIONS (4)
  - Cough [Unknown]
  - Drug dose omission by device [Unknown]
  - Device difficult to use [Unknown]
  - Product communication issue [Unknown]

NARRATIVE: CASE EVENT DATE: 20250127
